FAERS Safety Report 21042192 (Version 1)
Quarter: 2022Q3

REPORT INFORMATION
  Report Type: Spontaneous
  Country: US (occurrence: US)
  Receive Date: 20220705
  Receipt Date: 20220705
  Transmission Date: 20221026
  Serious: Yes (Other)
  Sender: FDA-Public Use
  Company Number: US-UNITED THERAPEUTICS-UNT-2022-014181

PATIENT
  Sex: Female

DRUGS (2)
  1. REMODULIN [Suspect]
     Active Substance: TREPROSTINIL
     Indication: Pulmonary arterial hypertension
     Dosage: UNK, CONTINUING
     Route: 058
     Dates: start: 20220513
  2. REMODULIN [Suspect]
     Active Substance: TREPROSTINIL
     Dosage: 0.0115 ?G/KG, CONTINUING
     Route: 058
     Dates: start: 2022

REACTIONS (5)
  - Systemic lupus erythematosus [Unknown]
  - Scleroderma [Unknown]
  - Arthralgia [Unknown]
  - Respiration abnormal [Unknown]
  - Oxygen consumption increased [Unknown]

NARRATIVE: CASE EVENT DATE: 20220101
